FAERS Safety Report 6303125-9 (Version None)
Quarter: 2009Q3

REPORT INFORMATION
  Report Type: 
  Country: None (occurrence: None)
  Receive Date: 20090810
  Receipt Date: 20090731
  Transmission Date: 20100115
  Serious: Yes (Other)
  Sender: FDA-Public Use
  Company Number: JP-MERCK-0906USA04216

PATIENT
  Age: 84 Year
  Sex: Female

DRUGS (7)
  1. FOSAMAX [Suspect]
     Indication: OSTEOPOROSIS
     Route: 048
     Dates: end: 20090601
  2. ONEALFA [Concomitant]
     Indication: OSTEOPOROSIS
     Route: 048
  3. NORVASC [Concomitant]
     Indication: HYPERTENSION
     Route: 048
  4. ARICEPT [Concomitant]
     Indication: DEMENTIA ALZHEIMER'S TYPE
     Route: 048
  5. OPALMON [Concomitant]
     Route: 048
  6. PREMINENT [Concomitant]
     Indication: HYPERTENSION
     Route: 048
  7. ADALAT CC [Concomitant]
     Indication: HYPERTENSION
     Route: 048

REACTIONS (1)
  - OSTEOMYELITIS [None]
